FAERS Safety Report 6082667-8 (Version None)
Quarter: 2009Q1

REPORT INFORMATION
  Report Type: 
  Country: None (occurrence: None)
  Receive Date: 20090218
  Receipt Date: 20090210
  Transmission Date: 20090719
  Serious: Yes (Other)
  Sender: FDA-Public Use
  Company Number: PHHY2009JP05059

PATIENT
  Sex: Male

DRUGS (3)
  1. ZOLEDRONIC ACID [Suspect]
     Indication: METASTASES TO BONE
     Dosage: 4 MG, EVERY 4 WEEKS
     Dates: start: 20060907, end: 20061005
  2. ZOLADEX [Concomitant]
     Indication: METASTASES TO BONE
     Dosage: 10.8 MG, UNK
     Route: 042
  3. ODYNE [Concomitant]
     Indication: METASTASES TO BONE
     Dosage: 3 DF, UNK
     Route: 048

REACTIONS (2)
  - ALANINE AMINOTRANSFERASE INCREASED [None]
  - ASPARTATE AMINOTRANSFERASE INCREASED [None]
